FAERS Safety Report 7564534-3 (Version None)
Quarter: 2011Q2

REPORT INFORMATION
  Report Type: 
  Country: None (occurrence: None)
  Receive Date: 20110622
  Receipt Date: 20100726
  Transmission Date: 20111010
  Serious: Yes (Other)
  Sender: FDA-Public Use
  Company Number: US-MYLANLABS-2010S1008443

PATIENT
  Age: 50 Year
  Sex: Male
  Weight: 63.5 kg

DRUGS (12)
  1. IMDUR [Concomitant]
  2. WELLBUTRIN [Concomitant]
  3. LEVOTHYROXINE SODIUM [Concomitant]
  4. CLOZAPINE [Suspect]
     Indication: SCHIZOPHRENIA
     Route: 048
     Dates: start: 20060201, end: 20100510
  5. CLOZAPINE [Suspect]
     Route: 048
     Dates: start: 20060201, end: 20100510
  6. COMPAZINE [Concomitant]
  7. ZANTAC [Concomitant]
  8. CHEMOTHERAPEUTICS [Suspect]
     Indication: LUNG NEOPLASM MALIGNANT
     Dates: start: 20100401
  9. DEPAKOTE [Concomitant]
  10. MEVACOR [Concomitant]
  11. PRILOSEC [Concomitant]
  12. COGENTIN [Concomitant]

REACTIONS (1)
  - LEUKOPENIA [None]
